FAERS Safety Report 4682549-X (Version None)
Quarter: 2005Q2

REPORT INFORMATION
  Report Type: 
  Country: None (occurrence: None)
  Receive Date: 20050606
  Receipt Date: 20050303
  Transmission Date: 20051028
  Serious: Yes (Hospitalization, Other)
  Sender: FDA-Public Use
  Company Number: US-MERCK-0503USA00806

PATIENT
  Age: 62 Year
  Sex: Female
  Weight: 82 kg

DRUGS (22)
  1. VIOXX [Suspect]
     Indication: PAIN
     Route: 048
     Dates: start: 20021007, end: 20040801
  2. VIOXX [Suspect]
     Route: 048
     Dates: start: 20020106, end: 20030910
  3. ACEON [Concomitant]
     Route: 065
     Dates: start: 20010927, end: 20041205
  4. ACTOS [Concomitant]
     Route: 065
  5. GLYBURIDE [Concomitant]
     Route: 065
  6. LOZOL [Concomitant]
     Route: 065
  7. GLUCOPHAGE [Concomitant]
     Route: 065
  8. ACETAMINOPHEN [Concomitant]
     Route: 065
     Dates: start: 19990105, end: 20040101
  9. LIPITOR [Concomitant]
     Route: 065
     Dates: start: 19990307
  10. ALPRAZOLAM [Concomitant]
     Route: 065
  11. PAXIL [Concomitant]
     Route: 065
  12. VERELAN PM [Concomitant]
     Route: 065
  13. AMBIEN [Concomitant]
     Route: 065
  14. CLONIDINE [Concomitant]
     Route: 065
  15. PREVACID [Concomitant]
     Route: 065
  16. CIPRO [Concomitant]
     Route: 065
  17. COVERA-HS [Concomitant]
     Route: 065
  18. TRAMADOL MSD [Concomitant]
     Route: 065
  19. SULFAMETHOXAZOLE AND TRIMETHOPRIM [Concomitant]
     Route: 065
  20. CELEBREX [Concomitant]
     Route: 065
     Dates: start: 20000101, end: 20040101
  21. PREMARIN [Concomitant]
     Route: 065
     Dates: start: 19990211
  22. HYDROQUINONE [Concomitant]
     Route: 065

REACTIONS (9)
  - ABDOMINAL PAIN UPPER [None]
  - BLOOD GLUCOSE INCREASED [None]
  - BLOOD PRESSURE INCREASED [None]
  - EMOTIONAL DISTRESS [None]
  - GASTRIC DISORDER [None]
  - MUSCLE SPASMS [None]
  - PAIN [None]
  - SILENT MYOCARDIAL INFARCTION [None]
  - URINARY TRACT INFECTION [None]
